FAERS Safety Report 4824222-0 (Version None)
Quarter: 2005Q4

REPORT INFORMATION
  Report Type: 
  Country: None (occurrence: None)
  Receive Date: 20051108
  Receipt Date: 20051021
  Transmission Date: 20060501
  Serious: Yes (Other)
  Sender: FDA-Public Use
  Company Number: 2005150130

PATIENT
  Sex: Female

DRUGS (2)
  1. CELEBREX [Suspect]
     Indication: ARTHRALGIA
     Dates: start: 20010101
  2. CELEBREX [Suspect]
     Indication: JOINT SWELLING
     Dates: start: 20010101

REACTIONS (1)
  - MYOCARDIAL INFARCTION [None]
